FAERS Safety Report 8533687 (Version 3)
Quarter: 2013Q2

REPORT INFORMATION
  Report Type: Spontaneous
  Country: US (occurrence: US)
  Receive Date: 20120427
  Receipt Date: 20130422
  Transmission Date: 20140414
  Serious: Yes (Other)
  Sender: FDA-Public Use
  Company Number: US-PFIZER INC-2012100855

PATIENT
  Age: 47 Year
  Sex: Female
  Weight: 136 kg

DRUGS (15)
  1. LYRICA [Suspect]
     Indication: FIBROMYALGIA
     Dosage: 75 MG, 1X/DAY
     Route: 048
     Dates: start: 2011
  2. LIPITOR [Suspect]
     Indication: BLOOD CHOLESTEROL INCREASED
     Dosage: 10MG DAILY
     Route: 048
     Dates: start: 201110, end: 2012
  3. LIPITOR [Suspect]
     Dosage: 20MG DAILY
     Route: 048
     Dates: start: 201204
  4. FUROSEMIDE [Suspect]
     Indication: DIURETIC THERAPY
     Dosage: 40MG DAILY
     Dates: start: 1986
  5. TYLENOL W/CODEINE NO. 3 [Suspect]
     Indication: BACK PAIN
     Dosage: UNK (ON AND OFF)
     Dates: start: 2000
  6. TYLENOL W/CODEINE NO. 3 [Suspect]
     Indication: PAIN
     Dosage: UNK (TAKING REGULARLY)
     Dates: start: 2010
  7. TYLENOL W/CODEINE NO. 3 [Suspect]
     Dosage: 1MG EVERY SIX HOURS
     Dates: start: 20120416, end: 20120418
  8. LEVOTHYROXINE [Concomitant]
     Indication: THYROID DISORDER
     Dosage: 200MCG DAILY
  9. BENTYL [Concomitant]
     Indication: GASTROINTESTINAL PAIN
     Dosage: 20 MG, AS NEEDED
     Dates: start: 2009
  10. ALPRAZOLAM [Concomitant]
     Indication: ANXIETY
     Dosage: 1 MG, AS NEEDED
  11. DARVOCET [Concomitant]
     Dosage: UNK
     Dates: end: 2010
  12. ACETAZOLAMIDE [Concomitant]
     Indication: DIURETIC THERAPY
     Dosage: 250 MG, 2X/DAY
     Dates: start: 201112
  13. TYLENOL W/CODEINE NO. 4 [Concomitant]
     Indication: BACK PAIN
     Dosage: UNK,DAILY
     Dates: start: 201203
  14. TYLENOL W/CODEINE NO. 4 [Concomitant]
     Indication: FIBROMYALGIA
  15. METOPROLOL [Concomitant]
     Indication: HYPERTENSION
     Dosage: UNK

REACTIONS (11)
  - Foot fracture [Unknown]
  - Angina pectoris [Unknown]
  - Gout [Unknown]
  - Musculoskeletal disorder [Unknown]
  - Bedridden [Unknown]
  - Fall [Unknown]
  - Arthritis [Unknown]
  - Pain [Unknown]
  - Blood cholesterol increased [Unknown]
  - Nausea [Unknown]
  - Feeling abnormal [Unknown]
